FAERS Safety Report 21082680 (Version 1)
Quarter: 2022Q3

REPORT INFORMATION
  Report Type: Spontaneous
  Country: FR (occurrence: FR)
  Receive Date: 20220714
  Receipt Date: 20220714
  Transmission Date: 20221026
  Serious: Yes (Hospitalization, Other)
  Sender: FDA-Public Use
  Company Number: FR-BAYER-2017-144187

PATIENT
  Age: 21 Year
  Sex: Female
  Weight: 107 kg

DRUGS (4)
  1. ACETAMINOPHEN [Interacting]
     Active Substance: ACETAMINOPHEN
     Indication: Product used for unknown indication
     Route: 048
  2. RIVAROXABAN [Interacting]
     Active Substance: RIVAROXABAN
     Indication: Suicide attempt
     Route: 048
  3. VALPROMIDE [Interacting]
     Active Substance: VALPROMIDE
     Indication: Product used for unknown indication
     Route: 048
  4. PROPRANOLOL HYDROCHLORIDE [Interacting]
     Active Substance: PROPRANOLOL HYDROCHLORIDE
     Indication: Product used for unknown indication
     Route: 048

REACTIONS (6)
  - Intentional overdose [Unknown]
  - Poisoning deliberate [Unknown]
  - Prescription drug used without a prescription [Unknown]
  - Drug interaction [Unknown]
  - Toxicity to various agents [Unknown]
  - Bradycardia [Unknown]
